FAERS Safety Report 9443881 (Version 1)
Quarter: 2013Q3

REPORT INFORMATION
  Report Type: Report from Study
  Country: AU (occurrence: AU)
  Receive Date: 20130806
  Receipt Date: 20130806
  Transmission Date: 20140515
  Serious: Yes (Disabling)
  Sender: FDA-Public Use
  Company Number: PHHY2012AU012869

PATIENT
  Sex: Male

DRUGS (15)
  1. EXJADE [Suspect]
     Indication: MYELODYSPLASTIC SYNDROME
     Dosage: 250 MG, QD
     Route: 048
     Dates: start: 20120108
  2. EXJADE [Suspect]
     Dosage: 250 MG, BID
     Route: 048
  3. EXJADE [Suspect]
     Dosage: 1000 MG QD
     Route: 048
  4. CIALIS [Concomitant]
  5. CODEINE [Concomitant]
  6. GASTRO-STOP [Concomitant]
     Dosage: 2 MG, BID
  7. LOMOTIL [Concomitant]
     Dosage: 0.025 MG, 9 TIMES DAILY
     Route: 048
  8. NITROLINGUAL-PUMPSPRAY [Concomitant]
     Dosage: 400 UG, SPRAY UNDER THE TONGUE
     Route: 060
  9. PANADEINE FORTE [Concomitant]
     Dosage: 30 MG, 1-2 FOUR TIMES A DAY
     Route: 048
  10. PANADOL [Concomitant]
     Dosage: 1330 MG, TID
     Route: 048
  11. PANCRELIPASE [Concomitant]
     Route: 048
  12. PRAMIN [Concomitant]
     Dosage: 10 MG, TID
  13. SOMAC [Concomitant]
     Dosage: 40 MG, QD
  14. TEMAZE [Concomitant]
     Dosage: 10 MG, BEFORE BED
  15. ZOLADEX [Concomitant]

REACTIONS (13)
  - Feeling abnormal [Not Recovered/Not Resolved]
  - Gastric cancer [Not Recovered/Not Resolved]
  - Second primary malignancy [Not Recovered/Not Resolved]
  - Metastases to bone [Not Recovered/Not Resolved]
  - Malignant melanoma [Not Recovered/Not Resolved]
  - Abdominal pain [Not Recovered/Not Resolved]
  - Nausea [Not Recovered/Not Resolved]
  - Pain [Not Recovered/Not Resolved]
  - Wrong technique in drug usage process [Unknown]
  - Confusional state [Unknown]
  - Abdominal discomfort [Unknown]
  - Diarrhoea [Not Recovered/Not Resolved]
  - Faeces discoloured [Unknown]
